FAERS Safety Report 6839210-2 (Version None)
Quarter: 2010Q3

REPORT INFORMATION
  Report Type: 
  Country: None (occurrence: None)
  Receive Date: 20100714
  Receipt Date: 20100702
  Transmission Date: 20110219
  Serious: Yes (Other)
  Sender: FDA-Public Use
  Company Number: US-BAYER-201027137NA

PATIENT
  Age: 35 Year
  Sex: Female

DRUGS (1)
  1. ULTRAVIST 300 [Suspect]
     Indication: UROGRAM
     Dosage: AS USED: 100 ML
     Dates: start: 20100513, end: 20100513

REACTIONS (6)
  - DRY EYE [None]
  - EYE PRURITUS [None]
  - NASAL DISCOMFORT [None]
  - OCULAR HYPERAEMIA [None]
  - SNEEZING [None]
  - URTICARIA [None]
